FAERS Safety Report 4968178-9 (Version None)
Quarter: 2006Q2

REPORT INFORMATION
  Report Type: 
  Country: None (occurrence: None)
  Receive Date: 20060410
  Receipt Date: 20060215
  Transmission Date: 20061013
  Serious: Yes (Hospitalization)
  Sender: FDA-Public Use
  Company Number: 2006AP01012

PATIENT
  Age: 28037 Day
  Sex: Female
  Weight: 53.8 kg

DRUGS (10)
  1. IRESSA [Suspect]
     Route: 048
     Dates: start: 20060119, end: 20060123
  2. IRESSA [Suspect]
     Route: 048
     Dates: start: 20060130, end: 20060206
  3. AMARYL [Concomitant]
     Indication: DIABETES MELLITUS
     Route: 048
  4. ATLEC [Concomitant]
     Indication: HYPERTENSION
     Route: 048
  5. ACTOS [Concomitant]
     Indication: DIABETES MELLITUS
     Route: 048
  6. ASPIRIN [Concomitant]
     Indication: ANGINA PECTORIS
     Route: 048
  7. BASEN OD [Concomitant]
     Indication: DIABETES MELLITUS
     Route: 048
  8. MICARDIS [Concomitant]
     Indication: HYPERTENSION
     Route: 048
  9. OMEPRAZON [Concomitant]
     Indication: GASTRIC ULCER
     Route: 048
  10. EURODIN [Concomitant]
     Indication: INSOMNIA
     Route: 048

REACTIONS (3)
  - C-REACTIVE PROTEIN INCREASED [None]
  - INFLAMMATION [None]
  - PYREXIA [None]
